FAERS Safety Report 17080960 (Version 2)
Quarter: 2019Q4

REPORT INFORMATION
  Report Type: Spontaneous
  Country: US (occurrence: US)
  Receive Date: 20191127
  Receipt Date: 20191221
  Transmission Date: 20200122
  Serious: Yes (Life-Threatening, Other)
  Sender: FDA-Public Use
  Company Number: US-009507513-1911USA008032

PATIENT
  Age: 2 Month
  Sex: Male
  Weight: 7.3 kg

DRUGS (5)
  1. FENTANYL. [Suspect]
     Active Substance: FENTANYL
     Dosage: 10 MICROGRAM
     Dates: start: 201905, end: 201905
  2. CLONIDINE. [Suspect]
     Active Substance: CLONIDINE
     Dosage: 10 MICROGRAM
     Dates: start: 201905, end: 201905
  3. BRIDION [Suspect]
     Active Substance: SUGAMMADEX
     Indication: NEUROMUSCULAR BLOCKADE REVERSAL
     Dosage: 20 MILLIGRAM, ONCE
     Route: 042
     Dates: start: 20190509, end: 20190509
  4. ROCURONIUM BROMIDE. [Suspect]
     Active Substance: ROCURONIUM BROMIDE
     Dosage: 10 MILLIGRAM
     Dates: start: 201905, end: 201905
  5. ROPIVACAINE. [Suspect]
     Active Substance: ROPIVACAINE HYDROCHLORIDE
     Dosage: 7 MILLILITER
     Dates: start: 201905, end: 201905

REACTIONS (5)
  - Asthenia [Recovered/Resolved]
  - Postoperative respiratory distress [Recovered/Resolved]
  - Respiratory depression [Recovered/Resolved]
  - Recurrence of neuromuscular blockade [Recovered/Resolved]
  - Respiratory arrest [Recovered/Resolved]

NARRATIVE: CASE EVENT DATE: 20190509
